FAERS Safety Report 9509555 (Version 1)
Quarter: 2013Q3

REPORT INFORMATION
  Report Type: Spontaneous
  Country: US (occurrence: US)
  Receive Date: 20130909
  Receipt Date: 20130909
  Transmission Date: 20140515
  Serious: No
  Sender: FDA-Public Use
  Company Number: US-BRISTOL-MYERS SQUIBB COMPANY-17234634

PATIENT
  Age: 6 Decade
  Sex: Female

DRUGS (2)
  1. ABILIFY [Suspect]
     Indication: BIPOLAR DISORDER
     Dosage: INT FOR 3 WKS
  2. BENADRYL [Suspect]

REACTIONS (4)
  - Muscle rigidity [Recovering/Resolving]
  - Blunted affect [Unknown]
  - Dyskinesia [Recovering/Resolving]
  - Depressive symptom [Unknown]
